FAERS Safety Report 17186274 (Version 6)
Quarter: 2021Q2

REPORT INFORMATION
  Report Type: Report from Study
  Country: PL (occurrence: PL)
  Receive Date: 20191220
  Receipt Date: 20210423
  Transmission Date: 20210716
  Serious: Yes (Hospitalization, Disabling)
  Sender: FDA-Public Use
  Company Number: PL-AMGEN-POLCT2019209421

PATIENT
  Age: 62 Year
  Sex: Male
  Weight: 123 kg

DRUGS (7)
  1. HYDROCHLOROTHIAZIDE. [Concomitant]
     Active Substance: HYDROCHLOROTHIAZIDE
     Dosage: 12.5 MILLIGRAM
     Dates: start: 20190614, end: 20200123
  2. KETOPROFENUM [Concomitant]
     Dosage: 50 MILLIGRAM
     Dates: start: 20190827, end: 20190910
  3. ATORVASTATIN [Concomitant]
     Active Substance: ATORVASTATIN
     Indication: DYSLIPIDAEMIA
     Dosage: 40 MILLIGRAM
     Dates: start: 20141105
  4. BUPRENORPHINE. [Concomitant]
     Active Substance: BUPRENORPHINE
     Dosage: 20 MILLIGRAM (35 UG/HOUR)
     Dates: start: 20190911, end: 20191003
  5. MILURIT [Concomitant]
     Active Substance: ALLOPURINOL
     Dosage: 100 MILLIGRAM
     Dates: start: 20150907
  6. ASPIRIN [ACETYLSALICYLIC ACID] [Concomitant]
     Active Substance: ASPIRIN
     Dosage: UNK
  7. EVOLOCUMAB [Suspect]
     Active Substance: EVOLOCUMAB
     Indication: DYSLIPIDAEMIA
     Dosage: UNK MILLILITER
     Route: 058
     Dates: start: 20160913, end: 201909

REACTIONS (2)
  - Intervertebral discitis [Recovered/Resolved]
  - Aortic aneurysm [Recovered/Resolved]

NARRATIVE: CASE EVENT DATE: 20190919
